FAERS Safety Report 9118815 (Version 1)
Quarter: 2013Q1

REPORT INFORMATION
  Report Type: Spontaneous
  Country: US (occurrence: None)
  Receive Date: 20130221
  Receipt Date: 20130221
  Transmission Date: 20140127
  Serious: No
  Sender: FDA-Public Use
  Company Number: None

PATIENT
  Sex: Female
  Weight: 77.57 kg

DRUGS (2)
  1. CITALOPRAM 20 MG [Suspect]
  2. ESCITATOPRAM [Suspect]

REACTIONS (2)
  - Drug ineffective [None]
  - Palpitations [None]
